FAERS Safety Report 9158331 (Version 2)
Quarter: 2013Q2

REPORT INFORMATION
  Report Type: Spontaneous
  Country: US (occurrence: US)
  Receive Date: 20130312
  Receipt Date: 20130521
  Transmission Date: 20140414
  Serious: Yes (Hospitalization)
  Sender: FDA-Public Use
  Company Number: US-BAYER-2013-028686

PATIENT
  Age: 20 Year
  Sex: Female
  Weight: 54 kg

DRUGS (5)
  1. YASMIN [Suspect]
  2. OCELLA [Suspect]
  3. YAZ [Suspect]
  4. PERCOCET [Concomitant]
  5. AMOXICILLIN W/CLAVULANIC ACID [Concomitant]
     Dosage: 875 -125 MG
     Route: 048
     Dates: start: 20110421

REACTIONS (1)
  - Pulmonary embolism [None]
